FAERS Safety Report 18947471 (Version 2)
Quarter: 2021Q1

REPORT INFORMATION
  Report Type: Spontaneous
  Country: US (occurrence: US)
  Receive Date: 20210226
  Receipt Date: 20210309
  Transmission Date: 20210420
  Serious: Yes (Hospitalization)
  Sender: FDA-Public Use
  Company Number: US-ALLERGAN-2107871US

PATIENT
  Sex: Female

DRUGS (28)
  1. CEFTAROLINE FOSAMIL [Suspect]
     Active Substance: CEFTAROLINE FOSAMIL
     Indication: PAIN
     Dosage: UNK
  2. HYDROCODONE [Suspect]
     Active Substance: HYDROCODONE
     Indication: PAIN
  3. KETOROLAC TROMETHAMINE 0.4% [Suspect]
     Active Substance: KETOROLAC TROMETHAMINE
     Indication: STAPHYLOCOCCAL INFECTION
     Dosage: UNK
  4. VICODIN [Suspect]
     Active Substance: ACETAMINOPHEN\HYDROCODONE BITARTRATE
     Indication: STAPHYLOCOCCAL INFECTION
     Dosage: UNK
  5. CUBICIN [Suspect]
     Active Substance: DAPTOMYCIN
     Indication: PAIN
  6. CEFTRIAXONE. [Suspect]
     Active Substance: CEFTRIAXONE
     Indication: STAPHYLOCOCCAL INFECTION
     Dosage: UNK
  7. DOXYCYCLINE HYCLATE. [Suspect]
     Active Substance: DOXYCYCLINE HYCLATE
     Indication: STAPHYLOCOCCAL INFECTION
     Dosage: UNK
  8. ACETAMINOPHEN. [Suspect]
     Active Substance: ACETAMINOPHEN
     Indication: PAIN
  9. ACETAMINOPHEN. [Suspect]
     Active Substance: ACETAMINOPHEN
     Indication: STAPHYLOCOCCAL INFECTION
  10. HYDRODIURIL [Suspect]
     Active Substance: HYDROCHLOROTHIAZIDE
     Indication: PAIN
  11. ZESTRIL [Suspect]
     Active Substance: LISINOPRIL
     Indication: STAPHYLOCOCCAL INFECTION
     Dosage: UNK
  12. VANCOCIN [Suspect]
     Active Substance: VANCOMYCIN HYDROCHLORIDE
     Indication: STAPHYLOCOCCAL INFECTION
     Dosage: UNK
  13. CEFTRIAXONE. [Suspect]
     Active Substance: CEFTRIAXONE
     Indication: PAIN
  14. VANCOCIN [Suspect]
     Active Substance: VANCOMYCIN HYDROCHLORIDE
     Indication: PAIN
  15. CUBICIN [Suspect]
     Active Substance: DAPTOMYCIN
     Indication: STAPHYLOCOCCAL INFECTION
     Dosage: UNK
  16. CEFTAROLINE FOSAMIL [Suspect]
     Active Substance: CEFTAROLINE FOSAMIL
     Indication: STAPHYLOCOCCAL INFECTION
  17. HYDRODIURIL [Suspect]
     Active Substance: HYDROCHLOROTHIAZIDE
     Indication: STAPHYLOCOCCAL INFECTION
     Dosage: UNK
  18. VICODIN [Suspect]
     Active Substance: ACETAMINOPHEN\HYDROCODONE BITARTRATE
     Indication: PAIN
  19. DOXYCYCLINE HYCLATE. [Suspect]
     Active Substance: DOXYCYCLINE HYCLATE
     Indication: PAIN
  20. HYDROCODONE [Suspect]
     Active Substance: HYDROCODONE
     Indication: STAPHYLOCOCCAL INFECTION
  21. KETOROLAC TROMETHAMINE 0.4% [Suspect]
     Active Substance: KETOROLAC TROMETHAMINE
     Indication: PAIN
  22. PRINIVIL [Suspect]
     Active Substance: LISINOPRIL
     Indication: PAIN
     Dosage: UNK
  23. NORVASC [Suspect]
     Active Substance: AMLODIPINE BESYLATE
     Indication: PAIN
  24. METHYLPREDNISOLONE. [Suspect]
     Active Substance: METHYLPREDNISOLONE
     Indication: PAIN
     Dosage: UNK
  25. PRINIVIL [Suspect]
     Active Substance: LISINOPRIL
     Indication: STAPHYLOCOCCAL INFECTION
  26. ZESTRIL [Suspect]
     Active Substance: LISINOPRIL
     Indication: PAIN
  27. NORVASC [Suspect]
     Active Substance: AMLODIPINE BESYLATE
     Indication: STAPHYLOCOCCAL INFECTION
     Dosage: UNK
  28. METHYLPREDNISOLONE. [Suspect]
     Active Substance: METHYLPREDNISOLONE
     Indication: STAPHYLOCOCCAL INFECTION
     Dosage: UNK

REACTIONS (13)
  - Arteriosclerosis [Unknown]
  - Osteonecrosis [Unknown]
  - Blood creatinine increased [Unknown]
  - Tubulointerstitial nephritis [Unknown]
  - Fibrosis [Unknown]
  - Back pain [Unknown]
  - Inflammatory marker increased [Unknown]
  - Pyrexia [Unknown]
  - Atrophy [Unknown]
  - Asymptomatic bacteriuria [Unknown]
  - Osteomyelitis acute [Unknown]
  - Off label use [Unknown]
  - Intervertebral discitis [Unknown]
